FAERS Safety Report 10102644 (Version 2)
Quarter: 2014Q2

REPORT INFORMATION
  Report Type: Other
  Country: US (occurrence: US)
  Receive Date: 20140424
  Receipt Date: 20140629
  Transmission Date: 20141212
  Serious: Yes (Hospitalization, Other)
  Sender: FDA-Public Use
  Company Number: US-GSKPPD-2014GSK000379

PATIENT
  Age: 72 Year
  Sex: Male
  Weight: 77.63 kg

DRUGS (7)
  1. AVANDIA [Suspect]
     Indication: DIABETES MELLITUS
     Dosage: AVANDIA WAS NOT LISTED AMONG THE PATIENT^S RECORDS REVIEWED.
     Route: 048
  2. AVANDARYL [Suspect]
     Indication: DIABETES MELLITUS
     Dosage: 4 MG-2 MG
     Dates: start: 20060217, end: 20070820
  3. LOTREL [Concomitant]
     Dosage: 5/20 MG
     Route: 048
  4. TOPROL-XL [Concomitant]
     Route: 048
  5. LIPITOR [Concomitant]
     Route: 048
  6. ASPIRIN [Concomitant]
     Route: 048
  7. ZETIA [Concomitant]
     Route: 048

REACTIONS (1)
  - Coronary artery bypass [Recovered/Resolved]
